FAERS Safety Report 8884614 (Version 2)
Quarter: 2012Q4

REPORT INFORMATION
  Report Type: 
  Country: US (occurrence: US)
  Receive Date: 20121102
  Receipt Date: 20121109
  Transmission Date: 20130627
  Serious: Yes (Other)
  Sender: FDA-Public Use
  Company Number: PHHY2012US097640

PATIENT
  Age: 61 Year
  Sex: Female

DRUGS (3)
  1. NILOTINIB [Suspect]
     Indication: CHRONIC MYELOID LEUKAEMIA
     Dosage: 400 mg, daily
  2. NILOTINIB [Suspect]
     Dosage: 800 mg, daily
  3. NILOTINIB [Suspect]
     Dosage: 400 mg, twice daily

REACTIONS (6)
  - Arteriosclerosis [Unknown]
  - Arterial stenosis [Unknown]
  - Intermittent claudication [Unknown]
  - Coronary artery occlusion [Unknown]
  - Angina pectoris [Unknown]
  - Drug ineffective [Unknown]
